FAERS Safety Report 11528235 (Version 1)
Quarter: 2015Q3

REPORT INFORMATION
  Report Type: Spontaneous
  Country: US (occurrence: US)
  Receive Date: 20150921
  Receipt Date: 20150921
  Transmission Date: 20151125
  Serious: No
  Sender: FDA-Public Use
  Company Number: US-ACTELION PHARMACEUTICALS US, INC.-A-US2014-106461

PATIENT
  Age: 39 Year
  Sex: Female

DRUGS (3)
  1. TYLENOL [Concomitant]
     Active Substance: ACETAMINOPHEN
  2. VENTAVIS [Suspect]
     Active Substance: ILOPROST
     Indication: PULMONARY ARTERIAL HYPERTENSION
     Dosage: UNK
     Route: 055
     Dates: start: 20140909
  3. VENTAVIS [Suspect]
     Active Substance: ILOPROST
     Dosage: 2-3X/DAY
     Route: 055
     Dates: end: 2014

REACTIONS (5)
  - Dyspnoea [Unknown]
  - Somnolence [Unknown]
  - Tongue ulceration [Unknown]
  - Diarrhoea [Unknown]
  - Headache [Unknown]
